FAERS Safety Report 13549207 (Version 2)
Quarter: 2017Q2

REPORT INFORMATION
  Report Type: Spontaneous
  Country: TR (occurrence: TR)
  Receive Date: 20170516
  Receipt Date: 20170524
  Transmission Date: 20170830
  Serious: Yes (Life-Threatening, Other)
  Sender: FDA-Public Use
  Company Number: TR-BAUSCH-BL-2017-014597

PATIENT
  Sex: Female

DRUGS (3)
  1. CISPLATIN. [Suspect]
     Active Substance: CISPLATIN
     Indication: GASTRIC CANCER
     Dosage: 60 MILLIGRAMS/SQUARE METER, EVERY CYCLE (ON DAYS 3)
     Route: 042
  2. FLUOROURACIL. [Suspect]
     Active Substance: FLUOROURACIL
     Indication: GASTRIC CANCER
     Dosage: 600 MILLIGRAMS/SQUARE METER, EVERY CYCLE (ON DAY 1 TO 4)
     Route: 042
  3. DOCETAXEL. [Suspect]
     Active Substance: DOCETAXEL
     Indication: GASTRIC CANCER
     Dosage: 60 MILLIGRAMS/SQUARE METER, EVERY CYCLE (ON DAY 1)
     Route: 042

REACTIONS (1)
  - Superior sagittal sinus thrombosis [Unknown]
